FAERS Safety Report 15413025 (Version 1)
Quarter: 2018Q3

REPORT INFORMATION
  Report Type: Spontaneous
  Country: US (occurrence: US)
  Receive Date: 20180921
  Receipt Date: 20180921
  Transmission Date: 20181010
  Serious: No
  Sender: FDA-Public Use
  Company Number: US-JNJFOC-20180835573

PATIENT

DRUGS (2)
  1. NIZORAL A?D [Suspect]
     Active Substance: KETOCONAZOLE
     Indication: DANDRUFF
     Route: 065
  2. NIZORAL A?D [Suspect]
     Active Substance: KETOCONAZOLE
     Route: 065

REACTIONS (1)
  - Hair growth abnormal [Unknown]
